FAERS Safety Report 10036287 (Version 1)
Quarter: 2014Q1

REPORT INFORMATION
  Report Type: Spontaneous
  Country: US (occurrence: None)
  Receive Date: 20140306
  Receipt Date: 20140306
  Transmission Date: 20141002
  Serious: Yes (Hospitalization)
  Sender: FDA-Public Use
  Company Number: 163-21880-13011124

PATIENT
  Age: 67 Year
  Sex: Female

DRUGS (10)
  1. REVLIMID (LENALIDOMIDE) (15 MILLIGRAM, CAPSULES) [Suspect]
     Indication: PLASMA CELL MYELOMA
     Dosage: 21 IN 28 D
     Route: 048
     Dates: start: 20120731, end: 20121019
  2. CALCIUM CITRATE (CALCIUM CITRATE) [Concomitant]
  3. CARDIZEM (DILTIAZEM HYDROCHLORIDE) [Concomitant]
  4. COUMADIN (WARFARIN SODIUM) [Concomitant]
  5. FUROSEMIDE (FUROSEMIDE) [Concomitant]
  6. KLOR-CON (POTASSIUM CHLORIDE) [Concomitant]
  7. LORAZEPAM (LORAZEPAM) [Concomitant]
  8. MULTIVITAMINS (MULTIVITAMINS) [Concomitant]
  9. PROVENTIL HFA (SALBUTAMOL) [Concomitant]
  10. TIMOLOL MALEATE (TIMOLOL MALEATE) [Concomitant]

REACTIONS (1)
  - Intestinal perforation [None]
